FAERS Safety Report 25513034 (Version 1)
Quarter: 2025Q3

REPORT INFORMATION
  Report Type: Spontaneous
  Country: US (occurrence: US)
  Receive Date: 20250703
  Receipt Date: 20250703
  Transmission Date: 20251021
  Serious: No
  Sender: INCYTE
  Company Number: US-INCYTE CORPORATION-2025IN006990

PATIENT
  Age: 59 Year

DRUGS (1)
  1. JAKAFI [Suspect]
     Active Substance: RUXOLITINIB
     Indication: Myeloproliferative neoplasm
     Dosage: 10 MILLIGRAM, BID

REACTIONS (10)
  - Off label use [Unknown]
  - Renal function test abnormal [Unknown]
  - Nerve injury [Unknown]
  - Herpes zoster [Unknown]
  - Back disorder [Unknown]
  - Emotional disorder [Unknown]
  - Decreased activity [Unknown]
  - General physical health deterioration [Unknown]
  - Pain [Unknown]
  - Energy increased [Unknown]
